FAERS Safety Report 6844633 (Version 3)
Quarter: 2013Q1

REPORT INFORMATION
  Report Type: Spontaneous
  Country: US (occurrence: US)
  Receive Date: 20081212
  Receipt Date: 20130318
  Transmission Date: 20140127
  Serious: Yes (Other)
  Sender: FDA-Public Use
  Company Number: PHEH2008US10887

PATIENT
  Sex: Female

DRUGS (16)
  1. SANDOSTATIN [Suspect]
  2. SANDOSTATIN LAR DEPOT [Suspect]
     Dosage: 30 MG, EVERY 21 DAYS
     Dates: start: 2006
  3. PLAVIX [Interacting]
     Dosage: 600 MG, UNK
  4. DOSTINEX [Concomitant]
  5. SOMAVERT [Concomitant]
  6. ALLOPURINOL [Concomitant]
  7. K-DUR [Concomitant]
  8. WELCHOL [Concomitant]
  9. PROZAC [Concomitant]
  10. METFORMIN [Concomitant]
  11. VICTOZA [Concomitant]
  12. ASPIRIN [Concomitant]
     Dosage: UNK UKN, UNK
  13. VITAMIN B12 [Concomitant]
     Dosage: UNK UKN, UNK
  14. MULTIVITAMINS [Concomitant]
     Dosage: UNK UKN, UNK
  15. FISH OIL [Concomitant]
     Dosage: UNK UKN, UNK
  16. VITAMIN D [Concomitant]
     Dosage: UNK UKN, UNK

REACTIONS (2)
  - Thrombosis [Unknown]
  - Drug interaction [Unknown]
